FAERS Safety Report 10068911 (Version 3)
Quarter: 2014Q2

REPORT INFORMATION
  Report Type: Spontaneous
  Country: US (occurrence: US)
  Receive Date: 20140409
  Receipt Date: 20140522
  Transmission Date: 20141212
  Serious: Yes (Other)
  Sender: FDA-Public Use
  Company Number: US-PFIZER INC-2013083444

PATIENT
  Age: 58 Year
  Sex: Female
  Weight: 99.77 kg

DRUGS (1)
  1. PRISTIQ [Suspect]
     Indication: DEPRESSION
     Dosage: 100 MG, DAILY (EVERY MORNING)
     Route: 048
     Dates: start: 2011

REACTIONS (1)
  - Arthropathy [Unknown]
